FAERS Safety Report 6904844-3 (Version None)
Quarter: 2010Q3

REPORT INFORMATION
  Report Type: 
  Country: None (occurrence: None)
  Receive Date: 20100804
  Receipt Date: 20090722
  Transmission Date: 20110219
  Serious: No
  Sender: FDA-Public Use
  Company Number: US-PFIZER INC-2009246124

PATIENT
  Age: 46 Year
  Sex: Female
  Weight: 65.8 kg

DRUGS (4)
  1. LYRICA [Suspect]
     Indication: PARAESTHESIA
     Dosage: 150 MG, 1X/DAY
     Dates: start: 20090716, end: 20090721
  2. LYRICA [Suspect]
     Indication: HYPOAESTHESIA
  3. LYRICA [Suspect]
     Indication: PAIN
  4. GABAPENTIN [Concomitant]
     Dosage: UNK

REACTIONS (1)
  - LOSS OF LIBIDO [None]
